FAERS Safety Report 18590473 (Version 1)
Quarter: 2020Q4

REPORT INFORMATION
  Report Type: Spontaneous
  Country: DE (occurrence: DE)
  Receive Date: 20201208
  Receipt Date: 20201208
  Transmission Date: 20210114
  Serious: Yes (Other)
  Sender: FDA-Public Use
  Company Number: DE-ANIPHARMA-2020-DE-000306

PATIENT
  Age: 49 Year
  Sex: Male
  Weight: 107 kg

DRUGS (7)
  1. CANDESARTAN CILEXETIL. [Suspect]
     Active Substance: CANDESARTAN CILEXETIL
     Indication: PRODUCT USED FOR UNKNOWN INDICATION
     Dosage: 4 MG BID
     Route: 048
  2. BISOPROLOL [Concomitant]
     Active Substance: BISOPROLOL
     Dosage: 1.25 MG BID / DOSE TEXT: 1/2-0-1/2 / DOSE TEXT: 2.5 MG 1/2-0-1 / DOSE: 2.5 MG BID R
     Route: 065
     Dates: start: 20200801
  3. SPIRONOLACTONE. [Concomitant]
     Active Substance: SPIRONOLACTONE
     Dosage: 25 MG DAILY
     Route: 065
  4. TORASEMIDE [Concomitant]
     Active Substance: TORSEMIDE
     Dosage: 10 MG TID / DOSE: 10 MG DAILY
     Route: 065
  5. ENTRESTO [Concomitant]
     Active Substance: SACUBITRIL\VALSARTAN
     Dosage: 24/26 1/2-0-1- FURTHER DOSING AS FAR AS COMPATIBLE ACCORDING TO THE BELOW SCHEME /24/26 1-0-1/ 24/26
     Route: 065
     Dates: start: 20200701
  6. ASA [Concomitant]
     Active Substance: ASPIRIN
     Dosage: 100 MG DAILY
     Route: 065
  7. ATORVASTATIN [Concomitant]
     Active Substance: ATORVASTATIN
     Dosage: 40 MG DAILY
     Route: 065

REACTIONS (4)
  - Cardiac failure [Not Recovered/Not Resolved]
  - Bundle branch block left [Unknown]
  - Cardiac failure chronic [Not Recovered/Not Resolved]
  - Coronary artery disease [Unknown]

NARRATIVE: CASE EVENT DATE: 202005
